FAERS Safety Report 7769063-X (Version None)
Quarter: 2011Q3

REPORT INFORMATION
  Report Type: 
  Country: None (occurrence: None)
  Receive Date: 20110922
  Receipt Date: 20100311
  Transmission Date: 20111222
  Serious: No
  Sender: FDA-Public Use
  Company Number: US-ASTRAZENECA-2009UW03761

PATIENT
  Age: 53 Year
  Sex: Female
  Weight: 88 kg

DRUGS (12)
  1. SEROQUEL [Suspect]
     Indication: BORDERLINE PERSONALITY DISORDER
     Route: 048
     Dates: start: 20000101, end: 20060101
  2. CLOZAPINE [Concomitant]
     Dates: start: 19940101
  3. SEROQUEL [Suspect]
     Dosage: 100 MG AT NOON AND 400 MG AT BEDTIME
     Route: 048
     Dates: start: 20050518
  4. LEXAPRO [Concomitant]
     Dates: start: 20050518
  5. SEROQUEL [Suspect]
     Indication: DEPRESSION
     Route: 048
     Dates: start: 20000101, end: 20060101
  6. SEROQUEL [Suspect]
     Indication: ANXIETY
     Route: 048
     Dates: start: 20000101, end: 20060101
  7. RISPERDAL [Concomitant]
     Dates: start: 19940101
  8. SEROQUEL [Suspect]
     Dosage: 100 MG AT NOON AND 400 MG AT BEDTIME
     Route: 048
     Dates: start: 20050518
  9. ZYPREXA [Concomitant]
     Dates: start: 19990101
  10. SYMBYAX [Concomitant]
     Dates: start: 19990101
  11. KLONOPIN [Concomitant]
     Indication: DEPRESSION
     Route: 048
     Dates: start: 19940101
  12. SEROQUEL [Suspect]
     Dosage: 100 MG AT NOON AND 400 MG AT BEDTIME
     Route: 048
     Dates: start: 20050518

REACTIONS (4)
  - TYPE 2 DIABETES MELLITUS [None]
  - FUNCTIONAL GASTROINTESTINAL DISORDER [None]
  - JOINT INJURY [None]
  - SARCOIDOSIS [None]
